FAERS Safety Report 8596562-3 (Version None)
Quarter: 2012Q3

REPORT INFORMATION
  Report Type: 
  Country: None (occurrence: None)
  Receive Date: 20120815
  Receipt Date: 20120806
  Transmission Date: 20120928
  Serious: Yes (Hospitalization)
  Sender: FDA-Public Use
  Company Number: US-ASTRAZENECA-2012SE55289

PATIENT
  Sex: Female

DRUGS (2)
  1. BRILINTA [Suspect]
     Route: 048
  2. OTHER MEDICINES [Concomitant]

REACTIONS (1)
  - HAEMORRHAGE [None]
